FAERS Safety Report 9457423 (Version 2)
Quarter: 2013Q3

REPORT INFORMATION
  Report Type: Report from Study
  Country: CA (occurrence: CA)
  Receive Date: 20130814
  Receipt Date: 20130910
  Transmission Date: 20140515
  Serious: Yes (Other)
  Sender: FDA-Public Use
  Company Number: CA-CELGENEUS-028-22393-13074151

PATIENT
  Age: 64 Year
  Sex: Female

DRUGS (10)
  1. ISTODAX [Suspect]
     Indication: PERIPHERAL T-CELL LYMPHOMA UNSPECIFIED
     Route: 041
     Dates: start: 20130328, end: 2013
  2. ISTODAX [Suspect]
     Route: 041
     Dates: start: 20130404
  3. ISTODAX [Suspect]
     Route: 041
     Dates: start: 20130404
  4. KYTRIL [Concomitant]
     Indication: ANTIEMETIC SUPPORTIVE CARE
     Route: 065
     Dates: start: 20130328
  5. SLOW K [Concomitant]
     Indication: ELECTROLYTE SUBSTITUTION THERAPY
     Dosage: 2
     Route: 048
     Dates: start: 201303
  6. MG O4 [Concomitant]
     Indication: ELECTROLYTE SUBSTITUTION THERAPY
     Dosage: 2
     Route: 048
     Dates: start: 201303
  7. BISOPROLOL [Concomitant]
     Indication: CARDIAC DISORDER
     Dosage: 5 MILLIGRAM
     Route: 065
     Dates: start: 2004
  8. RAMIPRIL [Concomitant]
     Indication: CARDIAC DISORDER
     Dosage: 10 MILLIGRAM
     Route: 065
     Dates: start: 2004
  9. SPIRONOLACTONE [Concomitant]
     Indication: CARDIAC DISORDER
     Dosage: 25 MILLIGRAM
     Route: 065
     Dates: start: 2004
  10. LASIX [Concomitant]
     Indication: CARDIAC DISORDER
     Dosage: 40 MILLIGRAM
     Route: 065
     Dates: start: 2004

REACTIONS (1)
  - Electrocardiogram QT interval abnormal [Unknown]
